FAERS Safety Report 15881350 (Version 3)
Quarter: 2019Q3

REPORT INFORMATION
  Report Type: Report from Study
  Country: SI (occurrence: SI)
  Receive Date: 20190128
  Receipt Date: 20190717
  Transmission Date: 20191004
  Serious: Yes (Hospitalization, Other)
  Sender: FDA-Public Use
  Company Number: SI-SAOL THERAPEUTICS-2019SAO00023

PATIENT
  Age: 18 Year
  Sex: Female
  Weight: 26 kg

DRUGS (2)
  1. MEDUNA [Concomitant]
  2. LIORESAL [Suspect]
     Active Substance: BACLOFEN
     Dosage: 465.3 ?G, \DAY
     Route: 037
     Dates: start: 20180523

REACTIONS (5)
  - Implant site scar [Recovered/Resolved]
  - Dehiscence [Recovered/Resolved]
  - Device dislocation [Recovered/Resolved]
  - Muscle spasms [Unknown]
  - Necrosis [Recovered/Resolved]

NARRATIVE: CASE EVENT DATE: 20181008
